FAERS Safety Report 6368905-2 (Version None)
Quarter: 2009Q3

REPORT INFORMATION
  Report Type: 
  Country: None (occurrence: None)
  Receive Date: 20090916
  Receipt Date: 20090907
  Transmission Date: 20100115
  Serious: Yes (Other)
  Sender: FDA-Public Use
  Company Number: ADR20922009

PATIENT
  Sex: Female

DRUGS (1)
  1. JUFORMIN 500 MG (METFORMIN) [Suspect]
     Indication: DIABETES MELLITUS

REACTIONS (5)
  - ALOPECIA [None]
  - DYSGEUSIA [None]
  - JOINT STIFFNESS [None]
  - PH URINE DECREASED [None]
  - URINE ANALYSIS ABNORMAL [None]
